FAERS Safety Report 10734699 (Version 2)
Quarter: 2015Q1

REPORT INFORMATION
  Report Type: Report from Study
  Country: US (occurrence: US)
  Receive Date: 20150123
  Receipt Date: 20150123
  Transmission Date: 20150721
  Serious: No
  Sender: FDA-Public Use
  Company Number: US-AMGEN INC.-USASL2014101033

PATIENT
  Age: 70 Year
  Sex: Female

DRUGS (7)
  1. FAMCICLOVIR. [Concomitant]
     Active Substance: FAMCICLOVIR
     Indication: HERPES ZOSTER
  2. KYPROLIS [Suspect]
     Active Substance: CARFILZOMIB
     Indication: PLASMA CELL MYELOMA
     Dosage: UNK UNK, 2 TIMES/WK
     Route: 042
     Dates: start: 20140820
  3. ZOMETA [Concomitant]
     Active Substance: ZOLEDRONIC ACID
     Indication: PRODUCT USED FOR UNKNOWN INDICATION
     Dosage: UNK
  4. FAMCICLOVIR. [Concomitant]
     Active Substance: FAMCICLOVIR
     Indication: ANTIVIRAL PROPHYLAXIS
     Dosage: UNK
     Dates: start: 20140820
  5. ZOLOFT [Concomitant]
     Active Substance: SERTRALINE HYDROCHLORIDE
     Indication: DEPRESSION
  6. DEXAMETHASONE. [Concomitant]
     Active Substance: DEXAMETHASONE
     Indication: PLASMA CELL MYELOMA
     Dosage: UNK
     Dates: start: 20140820
  7. ZOLOFT [Concomitant]
     Active Substance: SERTRALINE HYDROCHLORIDE
     Indication: ANXIETY
     Dosage: UNK

REACTIONS (5)
  - Joint stiffness [Recovering/Resolving]
  - Muscle spasms [Recovered/Resolved]
  - Tooth infection [Recovering/Resolving]
  - Burn oesophageal [Recovered/Resolved]
  - Pain [Recovering/Resolving]

NARRATIVE: CASE EVENT DATE: 201408
